FAERS Safety Report 20100192 (Version 1)
Quarter: 2021Q4

REPORT INFORMATION
  Report Type: Spontaneous
  Country: US (occurrence: US)
  Receive Date: 20211123
  Receipt Date: 20211123
  Transmission Date: 20220303
  Serious: Yes (Other)
  Sender: FDA-Public Use
  Company Number: US-GILEAD-2021-0556394

PATIENT
  Age: 72 Year
  Sex: Female

DRUGS (10)
  1. EPCLUSA [Suspect]
     Active Substance: SOFOSBUVIR\VELPATASVIR
     Indication: Chronic hepatitis C
     Dosage: UNK
     Route: 065
     Dates: start: 20210515
  2. ZOFRAN [Concomitant]
     Active Substance: ONDANSETRON HYDROCHLORIDE
  3. LISINOPRIL [Concomitant]
     Active Substance: LISINOPRIL
  4. HYDROCORTISONE [Concomitant]
     Active Substance: HYDROCORTISONE
  5. ALBUTEROL SULFATE [Concomitant]
     Active Substance: ALBUTEROL SULFATE
  6. ASPIRIN [Concomitant]
     Active Substance: ASPIRIN
  7. ZEBETA [Concomitant]
     Active Substance: BISOPROLOL FUMARATE
  8. ZYRTEC [Concomitant]
     Active Substance: CETIRIZINE HYDROCHLORIDE
  9. PEPCID [Concomitant]
     Active Substance: FAMOTIDINE
  10. FLONASE [Concomitant]
     Active Substance: FLUTICASONE PROPIONATE

REACTIONS (1)
  - Drug ineffective [Not Recovered/Not Resolved]

NARRATIVE: CASE EVENT DATE: 20211105
